FAERS Safety Report 9674679 (Version 1)
Quarter: 2013Q4

REPORT INFORMATION
  Report Type: Spontaneous
  Country: US (occurrence: None)
  Receive Date: 20131106
  Receipt Date: 20131106
  Transmission Date: 20140711
  Serious: No
  Sender: FDA-Public Use
  Company Number: None

PATIENT
  Age: 48 Year
  Sex: Female
  Weight: 70.31 kg

DRUGS (7)
  1. MIRVASO [Suspect]
     Indication: ROSACEA
     Dosage: PEAS SIZED AMOUNT; APPLIED TO SURFACE USUALLY THE SKIN
     Route: 061
     Dates: start: 20131015, end: 20131020
  2. MIRVASO [Suspect]
     Indication: ERYTHEMA
     Dosage: PEAS SIZED AMOUNT; APPLIED TO SURFACE USUALLY THE SKIN
     Route: 061
     Dates: start: 20131015, end: 20131020
  3. ORACEA [Concomitant]
  4. SPIRO [Concomitant]
  5. SALMON OIL [Concomitant]
  6. GREEN TEA EXTRACT [Concomitant]
  7. RASPBERRY KEYTONES [Concomitant]

REACTIONS (4)
  - Flushing [None]
  - Rosacea [None]
  - Condition aggravated [None]
  - Feeling hot [None]
